FAERS Safety Report 15464840 (Version 1)
Quarter: 2018Q4

REPORT INFORMATION
  Report Type: Spontaneous
  Country: US (occurrence: US)
  Receive Date: 20181004
  Receipt Date: 20181004
  Transmission Date: 20190204
  Serious: No
  Sender: FDA-Public Use
  Company Number: US-TARO-2017TAR00750

PATIENT
  Age: 8 Year
  Sex: Male

DRUGS (1)
  1. LORATADINE SYRUP (LORATADINE ORAL SOLUTION USP) 5MG/5ML [Suspect]
     Active Substance: LORATADINE
     Dosage: UNK UNK, TWICE
     Dates: start: 20170904, end: 20170905

REACTIONS (2)
  - Abnormal behaviour [Unknown]
  - Overdose [Recovered/Resolved]

NARRATIVE: CASE EVENT DATE: 20170904
